FAERS Safety Report 8790842 (Version 2)
Quarter: 2013Q1

REPORT INFORMATION
  Report Type: Spontaneous
  Country: JP (occurrence: None)
  Receive Date: 20120910
  Receipt Date: 20121015
  Transmission Date: 20140127
  Serious: Yes (Hospitalization)
  Sender: FDA-Public Use
  Company Number: DSA_57368_2012

PATIENT
  Age: 72 Year
  Sex: Male
  Weight: 58.7 kg

DRUGS (8)
  1. PEGAPTANIB SODIUM [Suspect]
     Indication: DIABETIC RETINAL OEDEMA
     Dates: start: 20110704, end: 20110704
  2. DIOVAN [Concomitant]
  3. AMLODIPINE [Concomitant]
  4. MELBIN [Concomitant]
  5. VILDAGLIPTIN [Concomitant]
  6. NEOSYNESIN [Concomitant]
  7. CRAVIT [Concomitant]
  8. MYDRIN P [Concomitant]

REACTIONS (2)
  - Procedural pain [None]
  - Vitreous adhesions [None]
